FAERS Safety Report 6307623-3 (Version None)
Quarter: 2009Q3

REPORT INFORMATION
  Report Type: 
  Country: None (occurrence: None)
  Receive Date: 20090813
  Receipt Date: 20090803
  Transmission Date: 20100115
  Serious: Yes (Other)
  Sender: FDA-Public Use
  Company Number: PHHY2009JP33010

PATIENT
  Age: 82 Year
  Sex: Female

DRUGS (3)
  1. DIOVAN [Suspect]
     Indication: HYPERTENSION
     Dosage: 80 MG DAILY
     Route: 048
  2. ENSURE [Concomitant]
     Dosage: 6 DF QD
  3. ENSURE [Concomitant]
     Dosage: 5 DF, QD
     Dates: start: 20090806

REACTIONS (4)
  - BLOOD POTASSIUM INCREASED [None]
  - GASTRIC FISTULA [None]
  - GASTROSTOMY [None]
  - MALNUTRITION [None]
